FAERS Safety Report 25971181 (Version 1)
Quarter: 2025Q4

REPORT INFORMATION
  Report Type: Spontaneous
  Country: AU (occurrence: AU)
  Receive Date: 20251028
  Receipt Date: 20251028
  Transmission Date: 20260117
  Serious: Yes (Hospitalization, Other)
  Sender: MYLAN
  Company Number: AU-MYLANLABS-2025M1090371

PATIENT
  Age: 29 Year
  Sex: Female

DRUGS (8)
  1. CLOZARIL [Suspect]
     Active Substance: CLOZAPINE
     Indication: Schizophrenia
     Dosage: 500 MILLIGRAM
  2. CLOZARIL [Suspect]
     Active Substance: CLOZAPINE
     Dosage: 500 MILLIGRAM
     Route: 048
  3. CLOZARIL [Suspect]
     Active Substance: CLOZAPINE
     Dosage: 500 MILLIGRAM
     Route: 048
  4. CLOZARIL [Suspect]
     Active Substance: CLOZAPINE
     Dosage: 500 MILLIGRAM
  5. KETAMINE [Concomitant]
     Active Substance: KETAMINE
     Dosage: UNK (INFUSION)
  6. KETAMINE [Concomitant]
     Active Substance: KETAMINE
     Dosage: UNK (INFUSION)
     Route: 065
  7. KETAMINE [Concomitant]
     Active Substance: KETAMINE
     Dosage: UNK (INFUSION)
     Route: 065
  8. KETAMINE [Concomitant]
     Active Substance: KETAMINE
     Dosage: UNK (INFUSION)

REACTIONS (2)
  - Hospitalisation [Unknown]
  - Thrombocytosis [Unknown]

NARRATIVE: CASE EVENT DATE: 20251001
